FAERS Safety Report 24740005 (Version 2)
Quarter: 2024Q4

REPORT INFORMATION
  Report Type: Spontaneous
  Country: CN (occurrence: CN)
  Receive Date: 20241216
  Receipt Date: 20241223
  Transmission Date: 20250115
  Serious: Yes (Hospitalization, Other)
  Sender: MERCK
  Company Number: CN-009507513-2412CHN005118

PATIENT
  Age: 69 Year
  Sex: Male
  Weight: 50 kg

DRUGS (13)
  1. PEMBROLIZUMAB [Suspect]
     Active Substance: PEMBROLIZUMAB
     Dosage: 200 MG, Q3W
     Route: 041
     Dates: start: 20230516, end: 20230718
  2. PEMBROLIZUMAB [Suspect]
     Active Substance: PEMBROLIZUMAB
     Dosage: 200 MG, Q3W
     Route: 041
     Dates: start: 20230814, end: 20230926
  3. PEMBROLIZUMAB [Suspect]
     Active Substance: PEMBROLIZUMAB
     Dosage: 200 MG, Q3W
     Route: 041
     Dates: start: 20231117, end: 20231219
  4. PEMBROLIZUMAB [Suspect]
     Active Substance: PEMBROLIZUMAB
     Dosage: 200 MG, Q3W
     Route: 041
     Dates: start: 20240306, end: 20240717
  5. PEMBROLIZUMAB [Suspect]
     Active Substance: PEMBROLIZUMAB
     Dosage: 200 MG, Q3W
     Route: 041
     Dates: start: 20240925, end: 20241029
  6. CHANG SHU [Concomitant]
     Indication: Diarrhoea
     Dosage: 4 DOSAGE FORM, TID
     Route: 048
     Dates: start: 20240612, end: 202410
  7. OXYCODONE HYDROCHLORIDE [Concomitant]
     Active Substance: OXYCODONE HYDROCHLORIDE
     Indication: Neoplasm
     Dosage: 20 MILLIGRAM, BID
     Route: 048
     Dates: start: 20231219, end: 20241115
  8. OXYCODONE HYDROCHLORIDE [Concomitant]
     Active Substance: OXYCODONE HYDROCHLORIDE
     Indication: Cholecystitis chronic
  9. OXYCODONE HYDROCHLORIDE [Concomitant]
     Active Substance: OXYCODONE HYDROCHLORIDE
     Indication: Abdominal pain upper
  10. TRIMEBUTINE MALEATE [Concomitant]
     Active Substance: TRIMEBUTINE MALEATE
     Indication: Neoplasm
     Dosage: 1 DOSAGE FORM, TID
     Route: 048
     Dates: start: 20240831, end: 202410
  11. TRIMEBUTINE MALEATE [Concomitant]
     Active Substance: TRIMEBUTINE MALEATE
     Indication: Cholecystitis chronic
  12. TRIMEBUTINE MALEATE [Concomitant]
     Active Substance: TRIMEBUTINE MALEATE
     Indication: Abdominal pain upper
  13. ADEMETIONINE BUTANEDISULFONATE [Concomitant]
     Active Substance: ADEMETIONINE BUTANEDISULFONATE
     Indication: Prophylaxis
     Dosage: 2 DOSAGE FORM, TID
     Dates: start: 20240831

REACTIONS (19)
  - Immune-mediated enterocolitis [Not Recovered/Not Resolved]
  - Cholecystitis chronic [Not Recovered/Not Resolved]
  - Colonic abscess [Unknown]
  - Rectal dysplasia [Unknown]
  - Neoplasm [Unknown]
  - Therapy partial responder [Unknown]
  - Gamma-glutamyltransferase increased [Unknown]
  - Aspartate aminotransferase increased [Unknown]
  - Blood alkaline phosphatase increased [Unknown]
  - Blood cholinesterase decreased [Unknown]
  - Bile acids increased [Unknown]
  - Blood albumin decreased [Unknown]
  - Protein total decreased [Unknown]
  - Blood glucose increased [Unknown]
  - Large intestinal polypectomy [Unknown]
  - Colorectal adenoma [Unknown]
  - Inappropriate schedule of product administration [Unknown]
  - Inappropriate schedule of product administration [Unknown]
  - Inappropriate schedule of product administration [Unknown]

NARRATIVE: CASE EVENT DATE: 20230101
